FAERS Safety Report 15582707 (Version 1)
Quarter: 2018Q4

REPORT INFORMATION
  Report Type: Spontaneous
  Country: US (occurrence: US)
  Receive Date: 20181105
  Receipt Date: 20181105
  Transmission Date: 20190205
  Serious: No
  Sender: FDA-Public Use
  Company Number: US-TEVA-2018-US-970032

PATIENT
  Sex: Female

DRUGS (1)
  1. PRAVATAB [Suspect]
     Active Substance: PRAVASTATIN
     Indication: BLOOD CHOLESTEROL ABNORMAL
     Route: 065
     Dates: start: 20181022

REACTIONS (5)
  - Hypoaesthesia oral [Unknown]
  - Wrong technique in product usage process [Unknown]
  - Head discomfort [Unknown]
  - Migraine [Unknown]
  - Hypoaesthesia [Unknown]

NARRATIVE: CASE EVENT DATE: 20181022
